FAERS Safety Report 13966227 (Version 2)
Quarter: 2017Q4

REPORT INFORMATION
  Report Type: Spontaneous
  Country: US (occurrence: US)
  Receive Date: 20170913
  Receipt Date: 20171019
  Transmission Date: 20180320
  Serious: Yes (Hospitalization)
  Sender: FDA-Public Use
  Company Number: US-VIFOR (INTERNATIONAL) INC.-VIT-2017-09226

PATIENT
  Age: 64 Year
  Sex: Male

DRUGS (24)
  1. PROCARDIA [Concomitant]
     Active Substance: NIFEDIPINE
  2. NOVOLOG [Concomitant]
     Active Substance: INSULIN ASPART
  3. COLACE [Concomitant]
     Active Substance: DOCUSATE SODIUM
  4. FLEET ENEMA [Concomitant]
     Active Substance: SODIUM PHOSPHATE, DIBASIC\SODIUM PHOSPHATE, MONOBASIC
  5. MILK OF MAGNESIA [Concomitant]
     Active Substance: MAGNESIUM HYDROXIDE
  6. LASIX [Concomitant]
     Active Substance: FUROSEMIDE
  7. SENNA [Concomitant]
     Active Substance: SENNA LEAF\SENNOSIDES\SENNOSIDES A AND B
  8. VITAMINS NOS [Concomitant]
     Active Substance: VITAMINS
  9. SYNTHROID [Concomitant]
     Active Substance: LEVOTHYROXINE SODIUM
  10. CLONIDINE HYDROCHLORIDE. [Concomitant]
     Active Substance: CLONIDINE HYDROCHLORIDE
  11. LOSARTAN POTASSIUM. [Concomitant]
     Active Substance: LOSARTAN POTASSIUM
  12. SALBUTAMOL SULFATE [Concomitant]
     Active Substance: ALBUTEROL SULFATE
  13. VELTASSA [Suspect]
     Active Substance: PATIROMER
     Indication: HYPERKALAEMIA
     Route: 048
     Dates: start: 20170719, end: 2017
  14. GLYCERYL TRINITRATE [Concomitant]
     Active Substance: NITROGLYCERIN
  15. TORASEMIDE [Concomitant]
     Active Substance: TORSEMIDE
  16. JANUVIA [Concomitant]
     Active Substance: SITAGLIPTIN PHOSPHATE
  17. PANTOPRAZOLE SODIUM SESQUIHYDRATE [Concomitant]
     Active Substance: PANTOPRAZOLE SODIUM
  18. PNEUMOVAX 23 [Concomitant]
     Active Substance: PNEUMOCOCCAL VACCINE, POLYVALENT 23
  19. GABAPENTIN. [Concomitant]
     Active Substance: GABAPENTIN
  20. ASPIRIN. [Concomitant]
     Active Substance: ASPIRIN
  21. TYLENOL [Concomitant]
     Active Substance: ACETAMINOPHEN
  22. BRILINTA [Concomitant]
     Active Substance: TICAGRELOR
  23. HYDRALAZINE HYDROCHLORIDE. [Concomitant]
     Active Substance: HYDRALAZINE HYDROCHLORIDE
  24. DULCOLAX NOS [Concomitant]
     Active Substance: BISACODYL OR DOCUSATE SODIUM

REACTIONS (2)
  - Dehydration [Not Recovered/Not Resolved]
  - Pneumonia [Unknown]

NARRATIVE: CASE EVENT DATE: 20170823
